FAERS Safety Report 14675857 (Version 2)
Quarter: 2018Q2

REPORT INFORMATION
  Report Type: Spontaneous
  Country: JP (occurrence: JP)
  Receive Date: 20180323
  Receipt Date: 20180406
  Transmission Date: 20180711
  Serious: Yes (Other)
  Sender: FDA-Public Use
  Company Number: PHHY2018JP042522

PATIENT
  Age: 75 Year
  Sex: Male

DRUGS (6)
  1. OXALIPLATIN. [Suspect]
     Active Substance: OXALIPLATIN
     Dosage: 140 MG, QD
     Route: 065
  2. OXALIPLATIN. [Suspect]
     Active Substance: OXALIPLATIN
     Indication: RECTAL CANCER
     Dosage: 130 MG/M2, UNK
     Route: 065
     Dates: start: 201304
  3. CAPECITABINE. [Suspect]
     Active Substance: CAPECITABINE
     Indication: RECTAL CANCER
     Dosage: 2000 MG/M2, QD (DAY 1-14)
     Route: 065
     Dates: start: 201304
  4. CAPECITABINE. [Suspect]
     Active Substance: CAPECITABINE
     Dosage: 2400 MG, QD
     Route: 065
  5. CAPECITABINE. [Suspect]
     Active Substance: CAPECITABINE
     Dosage: 1800 MG, QD
     Route: 065
  6. CAPECITABINE. [Suspect]
     Active Substance: CAPECITABINE
     Dosage: 1200 MG, QD
     Route: 065

REACTIONS (8)
  - Ascites [Recovered/Resolved]
  - Decreased appetite [Unknown]
  - Liver injury [Unknown]
  - Malnutrition [Unknown]
  - Jaundice [Unknown]
  - Malaise [Unknown]
  - Abdominal distension [Unknown]
  - Electrolyte imbalance [Unknown]
